FAERS Safety Report 9294523 (Version 1)
Quarter: 2013Q1

REPORT INFORMATION
  Report Type: Spontaneous
  Country: US (occurrence: None)
  Receive Date: 20121227
  Receipt Date: 20121227
  Transmission Date: 20140127
  Serious: Yes (Other)
  Sender: FDA-Public Use
  Company Number: PHEH2011US011698

PATIENT
  Age: 64 Year
  Sex: Male
  Weight: 173 kg

DRUGS (1)
  1. EXJADE [Suspect]
     Indication: MYELODYSPLASTIC SYNDROME
     Route: 048
     Dates: start: 20111205, end: 20120123

REACTIONS (4)
  - Hepatic enzyme increased [None]
  - Diarrhoea [None]
  - Nausea [None]
  - Vomiting [None]
